FAERS Safety Report 7905766-1 (Version None)
Quarter: 2011Q4

REPORT INFORMATION
  Report Type: 
  Country: None (occurrence: None)
  Receive Date: 20111108
  Receipt Date: 20111025
  Transmission Date: 20120403
  Serious: Yes (Hospitalization)
  Sender: FDA-Public Use
  Company Number: TPG2011A02967

PATIENT
  Sex: Male

DRUGS (1)
  1. ACTOS [Suspect]
     Indication: PRODUCT USED FOR UNKNOWN INDICATION
     Dosage: PER ORAL
     Route: 048

REACTIONS (1)
  - BLADDER CANCER [None]
